FAERS Safety Report 20331077 (Version 2)
Quarter: 2022Q1

REPORT INFORMATION
  Report Type: Report from Study
  Country: CA (occurrence: CA)
  Receive Date: 20220113
  Receipt Date: 20220211
  Transmission Date: 20220423
  Serious: Yes (Other)
  Sender: FDA-Public Use
  Company Number: CA-JNJFOC-20220111923

PATIENT
  Age: 63 Year
  Sex: Female

DRUGS (14)
  1. MACITENTAN [Suspect]
     Active Substance: MACITENTAN
     Indication: Pulmonary hypertension
     Route: 048
     Dates: start: 20211213, end: 20220201
  2. ATORVASTATIN [Concomitant]
     Active Substance: ATORVASTATIN
  3. PERINDOPRIL [Concomitant]
     Active Substance: PERINDOPRIL
  4. FUROSEMIDE [Concomitant]
     Active Substance: FUROSEMIDE
  5. PANTOPRAZOLE [Concomitant]
     Active Substance: PANTOPRAZOLE
  6. CALCIUM [Concomitant]
     Active Substance: CALCIUM
  7. VITAMIN D3 [Concomitant]
     Active Substance: CHOLECALCIFEROL
  8. HYDROXOCOBALAMIN [Concomitant]
     Active Substance: HYDROXOCOBALAMIN
  9. VITAMIN K [Concomitant]
     Active Substance: PHYTONADIONE
  10. ASPIRIN [Concomitant]
     Active Substance: ASPIRIN
  11. CETIRIZINE HYDROCHLORIDE [Concomitant]
     Active Substance: CETIRIZINE HYDROCHLORIDE
  12. BUDESONIDE [Concomitant]
     Active Substance: BUDESONIDE
  13. OTRIVIN [Concomitant]
     Active Substance: XYLOMETAZOLINE
  14. ADCIRCA [Concomitant]
     Active Substance: TADALAFIL

REACTIONS (2)
  - Nasal congestion [Recovering/Resolving]
  - Gait inability [Recovering/Resolving]

NARRATIVE: CASE EVENT DATE: 20211201
